FAERS Safety Report 17241257 (Version 1)
Quarter: 2020Q1

REPORT INFORMATION
  Report Type: Spontaneous
  Country: US (occurrence: US)
  Receive Date: 20200106
  Receipt Date: 20200106
  Transmission Date: 20200409
  Serious: Yes (Disabling)
  Sender: FDA-Public Use
  Company Number: None

PATIENT
  Age: 44 Year
  Sex: Male
  Weight: 76.5 kg

DRUGS (1)
  1. FINPECIA [Suspect]
     Active Substance: FINASTERIDE
     Indication: HAIR GROWTH ABNORMAL
     Dosage: ?          QUANTITY:1 TABLET(S);?
     Route: 048
     Dates: start: 20091001, end: 20120601

REACTIONS (2)
  - Male orgasmic disorder [None]
  - Erectile dysfunction [None]

NARRATIVE: CASE EVENT DATE: 20120601
